FAERS Safety Report 15307254 (Version 2)
Quarter: 2018Q3

REPORT INFORMATION
  Report Type: Spontaneous
  Country: AR (occurrence: AR)
  Receive Date: 20180822
  Receipt Date: 20180910
  Transmission Date: 20181010
  Serious: Yes (Other)
  Sender: FDA-Public Use
  Company Number: AR-PFIZER INC-2018334246

PATIENT
  Age: 62 Year
  Sex: Male

DRUGS (1)
  1. SUTENT [Suspect]
     Active Substance: SUNITINIB MALATE
     Indication: METASTATIC RENAL CELL CARCINOMA
     Dosage: DAILY
     Dates: start: 20160320

REACTIONS (2)
  - Pneumonia [Recovered/Resolved]
  - Immunosuppression [Recovering/Resolving]

NARRATIVE: CASE EVENT DATE: 20180809
